FAERS Safety Report 19561897 (Version 1)
Quarter: 2021Q3

REPORT INFORMATION
  Report Type: Spontaneous
  Country: US (occurrence: US)
  Receive Date: 20210716
  Receipt Date: 20210716
  Transmission Date: 20211014
  Serious: Yes (Other)
  Sender: FDA-Public Use
  Company Number: None

PATIENT
  Age: 79 Year
  Sex: Female
  Weight: 68.04 kg

DRUGS (8)
  1. EZETIMIBE 10MG [Concomitant]
     Active Substance: EZETIMIBE
  2. METAMUCIL [Concomitant]
     Active Substance: PLANTAGO SEED
  3. CALCIUM [Concomitant]
     Active Substance: CALCIUM
  4. DOXYCYCLINE. [Suspect]
     Active Substance: DOXYCYCLINE
     Indication: PNEUMONIA
     Dosage: ?          QUANTITY:1 DF DOSAGE FORM;OTHER FREQUENCY:Q12H;?
     Route: 048
     Dates: start: 20210625, end: 20210630
  5. LOSARTAN POTASSIUM. [Concomitant]
     Active Substance: LOSARTAN POTASSIUM
  6. ASPARIN 81MG [Concomitant]
  7. AMLODIPINE BESYLATE 10MG [Concomitant]
     Active Substance: AMLODIPINE BESYLATE
  8. MULTIVITAMIN [Concomitant]
     Active Substance: VITAMINS

REACTIONS (5)
  - Arthralgia [None]
  - Abdominal discomfort [None]
  - Pain in extremity [None]
  - Plantar fasciitis [None]
  - Muscle spasms [None]

NARRATIVE: CASE EVENT DATE: 20210628
